FAERS Safety Report 7730880-3 (Version None)
Quarter: 2011Q3

REPORT INFORMATION
  Report Type: 
  Country: None (occurrence: None)
  Receive Date: 20110906
  Receipt Date: 20110901
  Transmission Date: 20111222
  Serious: Yes (Hospitalization, Other)
  Sender: FDA-Public Use
  Company Number: US-PFIZER INC-2011205340

PATIENT
  Sex: Female
  Weight: 70.295 kg

DRUGS (1)
  1. LIPITOR [Suspect]
     Indication: ARTERIAL DISORDER
     Dosage: UNK, 1X/DAY
     Route: 048
     Dates: start: 20110801, end: 20110101

REACTIONS (5)
  - PAIN IN JAW [None]
  - LOCAL SWELLING [None]
  - MYALGIA [None]
  - FACIAL PAIN [None]
  - SWELLING FACE [None]
